FAERS Safety Report 7418388-6 (Version None)
Quarter: 2011Q2

REPORT INFORMATION
  Report Type: 
  Country: None (occurrence: None)
  Receive Date: 20110415
  Receipt Date: 20110407
  Transmission Date: 20111010
  Serious: Yes (Hospitalization)
  Sender: FDA-Public Use
  Company Number: Z0008293A

PATIENT
  Sex: Female
  Weight: 63.9 kg

DRUGS (2)
  1. OFATUMUMAB [Suspect]
     Route: 042
     Dates: start: 20101021
  2. CHLORAMBUCIL [Suspect]
     Dosage: 10MGM2 PER DAY
     Route: 048
     Dates: start: 20101021

REACTIONS (1)
  - NEUTROPENIC SEPSIS [None]
